FAERS Safety Report 5246469-4 (Version None)
Quarter: 2007Q1

REPORT INFORMATION
  Report Type: 
  Country: None (occurrence: None)
  Receive Date: 20070216
  Receipt Date: 20070205
  Transmission Date: 20070707
  Serious: Yes (Other)
  Sender: FDA-Public Use
  Company Number: 230678

PATIENT
  Age: 13 Year
  Sex: Male
  Weight: 52.6 kg

DRUGS (1)
  1. NUTROPIN [Suspect]
     Indication: BODY HEIGHT BELOW NORMAL
     Dosage: 43 UNIT, QHS, SUBCUTANEOUS
     Route: 058
     Dates: start: 20060329

REACTIONS (5)
  - BLINDNESS TRANSIENT [None]
  - INJECTION SITE BRUISING [None]
  - INJECTION SITE PAIN [None]
  - MIGRAINE [None]
  - VISUAL FIELD DEFECT [None]
